FAERS Safety Report 25467789 (Version 1)
Quarter: 2025Q2

REPORT INFORMATION
  Report Type: Spontaneous
  Country: US (occurrence: None)
  Receive Date: 20250622
  Receipt Date: 20250622
  Transmission Date: 20250716
  Serious: Yes (Disabling)
  Sender: FDA-CTU
  Company Number: None

PATIENT
  Age: 67 Year
  Sex: Male
  Weight: 108.45 kg

DRUGS (23)
  1. LEVOFLOXACIN [Suspect]
     Active Substance: LEVOFLOXACIN
     Indication: Epididymitis
     Dosage: 100 TABLET(S) DAILY ORAL
     Route: 048
     Dates: start: 20240703, end: 20240712
  2. DEVICE [Concomitant]
     Active Substance: DEVICE
  3. METFORMIN [Concomitant]
     Active Substance: METFORMIN HYDROCHLORIDE
  4. PANTOPRAZOLE [Concomitant]
     Active Substance: PANTOPRAZOLE
  5. SIMVASTATIN [Concomitant]
     Active Substance: SIMVASTATIN
  6. LISINOPRIL [Concomitant]
     Active Substance: LISINOPRIL
  7. ASPIRIN [Concomitant]
     Active Substance: ASPIRIN
  8. FLAXSEED [Concomitant]
     Active Substance: FLAX SEED
  9. Probiotic, [Concomitant]
  10. Osteo bi flex [Concomitant]
  11. VITAMIN C [Concomitant]
     Active Substance: ASCORBIC ACID
  12. NAC [Concomitant]
  13. ALA [Concomitant]
  14. CoQ10, [Concomitant]
  15. MAGNESIUM [Concomitant]
     Active Substance: MAGNESIUM
  16. Glycinate [Concomitant]
  17. GARLIQUE [Concomitant]
     Active Substance: GARLIC
  18. Vitamin D, [Concomitant]
  19. VITAMINS [Concomitant]
     Active Substance: VITAMINS
  20. TOCOPHEROL [Concomitant]
     Active Substance: TOCOPHEROL
  21. Mens 50+ Multivitamin [Concomitant]
  22. HERBALS\TURMERIC [Concomitant]
     Active Substance: HERBALS\TURMERIC
  23. DIETARY SUPPLEMENT\HERBALS\MILK THISTLE [Concomitant]
     Active Substance: MILK THISTLE

REACTIONS (2)
  - Tendonitis [None]
  - Diabetes mellitus [None]

NARRATIVE: CASE EVENT DATE: 20240711
